FAERS Safety Report 4686967-5 (Version None)
Quarter: 2005Q2

REPORT INFORMATION
  Report Type: 
  Country: None (occurrence: None)
  Receive Date: 20050606
  Receipt Date: 20050524
  Transmission Date: 20051028
  Serious: Yes (Hospitalization)
  Sender: FDA-Public Use
  Company Number: 2005078586

PATIENT
  Age: 1 Day
  Sex: Female

DRUGS (4)
  1. ZOLOFT [Suspect]
     Indication: ILL-DEFINED DISORDER
  2. LERGIGAN (PROMETHAZINE HYDROCHLORIDE) [Concomitant]
  3. PROPAVAN (PROPIOMAZINE MALEATE) [Concomitant]
  4. SOBRIL (OXAZEPAM) [Concomitant]

REACTIONS (9)
  - ARRHYTHMIA NEONATAL [None]
  - BLOOD GLUCOSE DECREASED [None]
  - DRUG EXPOSURE DURING PREGNANCY [None]
  - DRUG EXPOSURE VIA BREAST MILK [None]
  - NEONATAL DISORDER [None]
  - NEONATAL TACHYCARDIA [None]
  - OXYGEN SATURATION DECREASED [None]
  - PREMATURE BABY [None]
  - SUPRAVENTRICULAR TACHYCARDIA [None]
